FAERS Safety Report 9414136 (Version 2)
Quarter: 2013Q3

REPORT INFORMATION
  Report Type: Spontaneous
  Country: None (occurrence: US)
  Receive Date: 20130723
  Receipt Date: 20130830
  Transmission Date: 20140515
  Serious: Yes (Hospitalization, Other)
  Sender: FDA-Public Use
  Company Number: US-TEVA-419540USA

PATIENT
  Age: 58 Year
  Sex: Female

DRUGS (1)
  1. COPAXONE [Suspect]
     Indication: MULTIPLE SCLEROSIS

REACTIONS (6)
  - Myelopathy [Recovering/Resolving]
  - Multiple sclerosis relapse [Unknown]
  - Abasia [Unknown]
  - Fall [Unknown]
  - Limb injury [Unknown]
  - Urinary retention [Unknown]
